FAERS Safety Report 16353858 (Version 1)
Quarter: 2019Q2

REPORT INFORMATION
  Report Type: Spontaneous
  Country: GR (occurrence: GR)
  Receive Date: 20190524
  Receipt Date: 20190524
  Transmission Date: 20190711
  Serious: Yes (Other)
  Sender: FDA-Public Use
  Company Number: PHHY2019GR119075

PATIENT
  Age: 75 Year
  Sex: Female

DRUGS (1)
  1. AMLODIPINE [Suspect]
     Active Substance: AMLODIPINE BESYLATE
     Indication: HYPERTENSION
     Route: 065

REACTIONS (10)
  - Osteolysis [Unknown]
  - Bone disorder [Unknown]
  - Arthralgia [Unknown]
  - Synostosis [Unknown]
  - Scoliosis [Unknown]
  - Blood calcium increased [Unknown]
  - Blood alkaline phosphatase increased [Unknown]
  - Osteoarthritis [Unknown]
  - Spinal pain [Unknown]
  - Intervertebral disc space narrowing [Unknown]
